FAERS Safety Report 11666892 (Version 1)
Quarter: 2015Q4

REPORT INFORMATION
  Report Type: Spontaneous
  Country: US (occurrence: US)
  Receive Date: 20151027
  Receipt Date: 20151027
  Transmission Date: 20160304
  Serious: No
  Sender: FDA-Public Use
  Company Number: US-ELI_LILLY_AND_COMPANY-US201002002485

PATIENT
  Age: 51 Year
  Sex: Female
  Weight: 48.98 kg

DRUGS (4)
  1. FORTEO [Suspect]
     Active Substance: TERIPARATIDE
     Dosage: 20 UG, QOD
     Dates: start: 200912
  2. FORTEO [Suspect]
     Active Substance: TERIPARATIDE
     Indication: OSTEOPOROSIS
     Dosage: 20 UG, DAILY (1/D)
     Dates: start: 200911
  3. FORTEO [Suspect]
     Active Substance: TERIPARATIDE
     Dosage: 20 UG, 2/W
  4. VITAMIN D [Concomitant]
     Active Substance: CHOLECALCIFEROL

REACTIONS (6)
  - Body mass index decreased [Unknown]
  - Inappropriate schedule of drug administration [Unknown]
  - Blood calcium increased [Recovered/Resolved]
  - Nausea [Recovering/Resolving]
  - Drug intolerance [Unknown]
  - Weight decreased [Unknown]

NARRATIVE: CASE EVENT DATE: 200912
